FAERS Safety Report 7728561-5 (Version None)
Quarter: 2011Q3

REPORT INFORMATION
  Report Type: 
  Country: None (occurrence: None)
  Receive Date: 20110906
  Receipt Date: 20110825
  Transmission Date: 20111222
  Serious: No
  Sender: FDA-Public Use
  Company Number: US-BIOGENIDEC-2011BI031427

PATIENT
  Sex: Female

DRUGS (2)
  1. TYSABRI [Suspect]
     Indication: MULTIPLE SCLEROSIS
     Route: 042
     Dates: start: 20100226
  2. EFFEXOR [Concomitant]
     Indication: DEPRESSION

REACTIONS (11)
  - NAUSEA [None]
  - BALANCE DISORDER [None]
  - MUSCULAR WEAKNESS [None]
  - DEPRESSION [None]
  - DIPLOPIA [None]
  - FALL [None]
  - MULTIPLE SCLEROSIS [None]
  - MEMORY IMPAIRMENT [None]
  - HEADACHE [None]
  - DYSPNOEA [None]
  - PAIN IN EXTREMITY [None]
